FAERS Safety Report 14994838 (Version 1)
Quarter: 2018Q2

REPORT INFORMATION
  Report Type: Spontaneous
  Country: US (occurrence: US)
  Receive Date: 20180518
  Receipt Date: 20180518
  Transmission Date: 20180711
  Serious: No
  Sender: FDA-Public Use
  Company Number: None

PATIENT
  Age: 62 Year
  Sex: Female

DRUGS (1)
  1. IOPAMIDOL [Suspect]
     Active Substance: IOPAMIDOL
     Indication: COMPUTERISED TOMOGRAM ABDOMEN
     Route: 040
     Dates: start: 20180508, end: 20180508

REACTIONS (1)
  - Nausea [None]

NARRATIVE: CASE EVENT DATE: 20180508
